FAERS Safety Report 4632360-0 (Version None)
Quarter: 2005Q2

REPORT INFORMATION
  Report Type: 
  Country: None (occurrence: None)
  Receive Date: 20050401
  Receipt Date: 20040610
  Transmission Date: 20051028
  Serious: Yes (Hospitalization)
  Sender: FDA-Public Use
  Company Number: 04P-163-0263508-00

PATIENT
  Age: 65 Year
  Sex: Female

DRUGS (6)
  1. DEPAKOTE [Suspect]
     Indication: BIPOLAR I DISORDER
     Dosage: 500 MG, 2 IN 1 D, PER ORAL
     Route: 048
     Dates: start: 20030401, end: 20040513
  2. OLANZAPINE [Concomitant]
  3. ESOMEPRAZOLE [Concomitant]
  4. TRILEPTAL [Concomitant]
  5. CLONAZEPAM [Concomitant]
  6. ASPIRIN [Concomitant]

REACTIONS (1)
  - PANCREATITIS [None]
